FAERS Safety Report 6977521-0 (Version None)
Quarter: 2010Q3

REPORT INFORMATION
  Report Type: 
  Country: None (occurrence: None)
  Receive Date: 20100910
  Receipt Date: 20100906
  Transmission Date: 20110219
  Serious: Yes (Hospitalization)
  Sender: FDA-Public Use
  Company Number: JP-AMGEN-US426171

PATIENT
  Sex: Female
  Weight: 48 kg

DRUGS (3)
  1. ENBREL [Suspect]
     Indication: RHEUMATOID ARTHRITIS
     Route: 058
     Dates: start: 20091101, end: 20100601
  2. VALSARTAN [Concomitant]
     Indication: HYPERTENSION
     Route: 048
  3. ADALAT CC [Concomitant]
     Indication: HYPERTENSION
     Route: 048
     Dates: end: 20100627

REACTIONS (1)
  - GLOMERULONEPHRITIS RAPIDLY PROGRESSIVE [None]
